FAERS Safety Report 25837584 (Version 1)
Quarter: 2025Q3

REPORT INFORMATION
  Report Type: Spontaneous
  Country: US (occurrence: None)
  Receive Date: 20250923
  Receipt Date: 20250923
  Transmission Date: 20251020
  Serious: Yes (Other)
  Sender: FDA-CTU
  Company Number: None

PATIENT
  Sex: Male

DRUGS (1)
  1. REPATHA [Suspect]
     Active Substance: EVOLOCUMAB
     Dosage: INJECT 140 MG UNDER THE SKIN (SUBCUTANEOUS INJECTION) EVERY 14 (FOURTEEN) DAYS.
     Route: 058

REACTIONS (2)
  - Localised infection [None]
  - Toe amputation [None]
